FAERS Safety Report 23105750 (Version 2)
Quarter: 2023Q4

REPORT INFORMATION
  Report Type: Spontaneous
  Country: US (occurrence: US)
  Receive Date: 20231025
  Receipt Date: 20231031
  Transmission Date: 20240109
  Serious: No
  Sender: FDA-Public Use
  Company Number: US-BoehringerIngelheim-2023-BI-269153

PATIENT
  Age: 56 Year
  Sex: Female

DRUGS (1)
  1. COMBIVENT [Suspect]
     Active Substance: ALBUTEROL SULFATE\IPRATROPIUM BROMIDE
     Indication: Product used for unknown indication
     Dosage: TWO PUFFS 6 TIMES A DAY?20.100
     Dates: start: 20181001

REACTIONS (2)
  - Herpes zoster [Unknown]
  - Stress [Unknown]

NARRATIVE: CASE EVENT DATE: 20231023
